FAERS Safety Report 7108990-3 (Version None)
Quarter: 2010Q4

REPORT INFORMATION
  Report Type: 
  Country: None (occurrence: None)
  Receive Date: 20101117
  Receipt Date: 20101112
  Transmission Date: 20110411
  Serious: Yes (Death, Life-Threatening, Hospitalization)
  Sender: FDA-Public Use
  Company Number: DE-CELGENEUS-062-21880-09120640

PATIENT
  Age: 70 Year
  Sex: Male

DRUGS (12)
  1. REVLIMID [Suspect]
     Indication: ACUTE MYELOID LEUKAEMIA
     Route: 048
     Dates: start: 20091112, end: 20091127
  2. URBASON [Concomitant]
     Indication: RHEUMATOID ARTHRITIS
     Route: 065
     Dates: start: 20091108, end: 20091118
  3. TILIDIN/NALOXANE [Concomitant]
     Indication: RHEUMATOID ARTHRITIS
     Route: 065
  4. SYREA [Concomitant]
     Indication: THERAPEUTIC PROCEDURE
     Route: 065
     Dates: start: 20091013, end: 20091110
  5. SYREA [Concomitant]
  6. PANTOPRAZOLE SODIUM [Concomitant]
     Indication: PROPHYLAXIS
     Route: 065
     Dates: start: 20091013, end: 20091030
  7. AMARYL [Concomitant]
     Indication: DIABETES MELLITUS
     Route: 065
     Dates: start: 20091105, end: 20091126
  8. AUGMENTIN '125' [Concomitant]
     Indication: INFECTION PROPHYLAXIS
     Route: 065
     Dates: start: 20091029, end: 20091126
  9. ONDANSETRON [Concomitant]
     Indication: NAUSEA
     Route: 048
     Dates: start: 20091114, end: 20091115
  10. ONDANSETRON [Concomitant]
     Route: 048
     Dates: start: 20091129, end: 20091130
  11. FLUCONAZOLE [Concomitant]
     Indication: ANTIFUNGAL PROPHYLAXIS
     Route: 065
     Dates: start: 20091115, end: 20091130
  12. ADRENALINE [Concomitant]
     Indication: EPISTAXIS
     Route: 065
     Dates: start: 20091109, end: 20091109

REACTIONS (4)
  - CONSTIPATION [None]
  - FEBRILE NEUTROPENIA [None]
  - RENAL FAILURE [None]
  - SEPTIC SHOCK [None]
